FAERS Safety Report 7676385-X (Version None)
Quarter: 2011Q3

REPORT INFORMATION
  Report Type: 
  Country: None (occurrence: None)
  Receive Date: 20110811
  Receipt Date: 20110808
  Transmission Date: 20111222
  Serious: No
  Sender: FDA-Public Use
  Company Number: US-PFIZER INC-2011136794

PATIENT
  Sex: Female
  Weight: 55 kg

DRUGS (2)
  1. PRISTIQ [Suspect]
     Indication: MAJOR DEPRESSION
     Dosage: 50 MG, 1X/DAY
     Route: 048
     Dates: start: 20110517
  2. SYNTHROID [Suspect]
     Dosage: UNK

REACTIONS (2)
  - MEDICATION RESIDUE [None]
  - DIARRHOEA [None]
